FAERS Safety Report 15949131 (Version 2)
Quarter: 2019Q1

REPORT INFORMATION
  Report Type: Spontaneous
  Country: FR (occurrence: FR)
  Receive Date: 20190212
  Receipt Date: 20190322
  Transmission Date: 20190417
  Serious: Yes (Hospitalization, Other)
  Sender: FDA-Public Use
  Company Number: FR-ABBVIE-19S-056-2658006-00

PATIENT
  Age: 63 Year
  Sex: Male
  Weight: 50.6 kg

DRUGS (4)
  1. DUODOPA [Suspect]
     Active Substance: CARBIDOPA\LEVODOPA
     Indication: PARKINSON^S DISEASE
     Dosage: MD : 5 ML?2.9 ML/H FROM 07:00 AM TO 01:00 PM?4.2 ML/H FROM 01:00 PM TO 10:00 PM
     Route: 050
     Dates: start: 20171107, end: 201901
  2. SINEMET [Concomitant]
     Active Substance: CARBIDOPA\LEVODOPA
     Indication: PARKINSON^S DISEASE
     Dosage: PR 200/50 FROM 01:00 PM TO 10:00 PM
  3. SINEMET [Concomitant]
     Active Substance: CARBIDOPA\LEVODOPA
     Dosage: 100/10 MG?1 TABLET AND 1/2 TABLET DURING 9 DAYS
  4. MADOPAR [Concomitant]
     Active Substance: BENSERAZIDE HYDROCHLORIDE\LEVODOPA
     Indication: PRODUCT USED FOR UNKNOWN INDICATION
     Dosage: 1 TABLET 1/2 IF NEEDED FOR FREEZING PHENOMENON

REACTIONS (4)
  - Injury associated with device [Recovered/Resolved]
  - Abdominal pain [Recovered/Resolved]
  - Intestinal perforation [Recovered/Resolved]
  - Device dislocation [Recovered/Resolved]

NARRATIVE: CASE EVENT DATE: 201901
